FAERS Safety Report 9914278 (Version 2)
Quarter: 2014Q1

REPORT INFORMATION
  Report Type: Spontaneous
  Country: US (occurrence: None)
  Receive Date: 20140218
  Receipt Date: 20140224
  Transmission Date: 20141002
  Serious: Yes (Other)
  Sender: FDA-Public Use
  Company Number: DSU-2014-00243

PATIENT
  Age: 61 Year
  Sex: Male

DRUGS (5)
  1. OLMESARTAN [Suspect]
     Indication: HYPERTENSION
     Dosage: 20 MG (20 MG, QD), PER ORAL
     Route: 048
     Dates: start: 2008
  2. AMLODIPINE (AMLODIPINE) (AMLODIPINE) [Concomitant]
  3. BUDESONIDE (BUDESONIDE) (BUDESONIDE) [Concomitant]
  4. PRAVASTATIN (PRAVASTATIN) (PRAVASTATIN) [Concomitant]
  5. ASPIRIN (ACETYLSALICYLIC ACID) (ACETYLSALICYLIC ACID) [Concomitant]

REACTIONS (4)
  - Weight decreased [None]
  - Diarrhoea [None]
  - Malabsorption [None]
  - Colitis microscopic [None]
